FAERS Safety Report 8242148-X (Version None)
Quarter: 2012Q1

REPORT INFORMATION
  Report Type: 
  Country: None (occurrence: None)
  Receive Date: 20120314
  Receipt Date: 20110729
  Transmission Date: 20120608
  Serious: No
  Sender: FDA-Public Use
  Company Number: PHHY2011US60617

PATIENT
  Age: 49 Year
  Sex: Male

DRUGS (5)
  1. SUMATRIPTAN SUCCINATE (IMITREX) [Concomitant]
  2. CLONAZEPAM [Concomitant]
  3. MIRTAZAPINE [Concomitant]
  4. FANAPT [Suspect]
     Indication: ANXIETY
     Dosage: 1 MG, BID, ORAL; 4 MG, BID, ORAL
     Route: 048
     Dates: start: 20110601, end: 20110611
  5. GABAPENTIN [Concomitant]

REACTIONS (4)
  - DIARRHOEA [None]
  - MUSCULOSKELETAL STIFFNESS [None]
  - JOINT STIFFNESS [None]
  - VOMITING [None]
